FAERS Safety Report 5981880-5 (Version None)
Quarter: 2008Q4

REPORT INFORMATION
  Report Type: 
  Country: None (occurrence: None)
  Receive Date: 20081202
  Receipt Date: 20081121
  Transmission Date: 20090506
  Serious: Yes (Hospitalization, Other)
  Sender: FDA-Public Use
  Company Number: 2008SP023374

PATIENT
  Sex: Female

DRUGS (6)
  1. MIRALAX [Suspect]
     Indication: CONSTIPATION
     Dosage: PO
     Route: 048
     Dates: start: 20081104, end: 20081111
  2. NITROGLYCERIN [Concomitant]
  3. NORVASC [Concomitant]
  4. DIURETIC [Concomitant]
  5. NEXIUM [Concomitant]
  6. MAALOX [Concomitant]

REACTIONS (7)
  - ABDOMINAL PAIN UPPER [None]
  - BLOOD PRESSURE INCREASED [None]
  - CHEST PAIN [None]
  - CONDITION AGGRAVATED [None]
  - CONSTIPATION [None]
  - GASTROOESOPHAGEAL REFLUX DISEASE [None]
  - PALPITATIONS [None]
